FAERS Safety Report 5753627-9 (Version None)
Quarter: 2008Q2

REPORT INFORMATION
  Report Type: 
  Country: None (occurrence: None)
  Receive Date: 20080530
  Receipt Date: 20080521
  Transmission Date: 20081010
  Serious: Yes (Life-Threatening, Hospitalization)
  Sender: FDA-Public Use
  Company Number: JP-JNJFOC-20080304318

PATIENT
  Sex: Female
  Weight: 46 kg

DRUGS (14)
  1. REMICADE [Suspect]
     Route: 042
  2. REMICADE [Suspect]
     Dosage: 5TH DOSE
     Route: 042
  3. REMICADE [Suspect]
     Dosage: 4TH DOSE
     Route: 042
  4. REMICADE [Suspect]
     Dosage: 3RD DOSE
     Route: 042
  5. REMICADE [Suspect]
     Dosage: 2ND DOSE
     Route: 042
  6. REMICADE [Suspect]
     Indication: RHEUMATOID ARTHRITIS
     Dosage: 1ST DOSE
     Route: 042
  7. RHEUMATREX [Concomitant]
  8. RHEUMATREX [Concomitant]
     Indication: RHEUMATOID ARTHRITIS
  9. ADRENAL HORMONE PREPARATION [Concomitant]
     Indication: RHEUMATOID ARTHRITIS
  10. PREDNISOLONE [Concomitant]
     Indication: RHEUMATOID ARTHRITIS
  11. RIMATIL [Concomitant]
     Indication: RHEUMATOID ARTHRITIS
  12. LOXONIN [Concomitant]
     Indication: RHEUMATOID ARTHRITIS
  13. FOLIAMIN [Concomitant]
  14. ALENDRONATE SODIUM [Concomitant]

REACTIONS (38)
  - ABDOMINAL DISTENSION [None]
  - ANOREXIA [None]
  - ANTINUCLEAR ANTIBODY POSITIVE [None]
  - ASCITES [None]
  - BLOOD IMMUNOGLOBULIN G INCREASED [None]
  - BLOOD IMMUNOGLOBULIN M INCREASED [None]
  - BONE MARROW FAILURE [None]
  - CHOLECYSTITIS ACUTE [None]
  - CHOLELITHIASIS [None]
  - COLLAGEN DISORDER [None]
  - DISSEMINATED INTRAVASCULAR COAGULATION [None]
  - DNA ANTIBODY POSITIVE [None]
  - DUODENAL SCARRING [None]
  - EPISTAXIS [None]
  - GASTRITIS [None]
  - GASTRODUODENAL ULCER [None]
  - HAEMATURIA [None]
  - HEPATIC FUNCTION ABNORMAL [None]
  - HEPATIC STEATOSIS [None]
  - HEPATOBILIARY DISEASE [None]
  - HERPES SIMPLEX [None]
  - HERPES ZOSTER [None]
  - INFLAMMATION [None]
  - INTERSTITIAL LUNG DISEASE [None]
  - LIVER DISORDER [None]
  - LYMPHADENOPATHY [None]
  - LYMPHOCYTOSIS [None]
  - MALAISE [None]
  - NEPHROLITHIASIS [None]
  - PANCYTOPENIA [None]
  - PARVOVIRUS INFECTION [None]
  - PLEURAL EFFUSION [None]
  - PYREXIA [None]
  - RENAL DISORDER [None]
  - SCAR [None]
  - SEPSIS [None]
  - SPLENOMEGALY [None]
  - VIRAL INFECTION [None]
